FAERS Safety Report 23273053 (Version 2)
Quarter: 2023Q4

REPORT INFORMATION
  Report Type: Report from Study
  Country: US (occurrence: US)
  Receive Date: 20231207
  Receipt Date: 20231213
  Transmission Date: 20240110
  Serious: Yes (Death)
  Sender: FDA-Public Use
  Company Number: US-BAUSCH-BL-2023-018095

PATIENT
  Age: 75 Year
  Sex: Male

DRUGS (1)
  1. XIFAXAN [Suspect]
     Active Substance: RIFAXIMIN
     Indication: Liver disorder
     Route: 048

REACTIONS (2)
  - Death [Fatal]
  - Hospice care [Unknown]

NARRATIVE: CASE EVENT DATE: 20231129
